FAERS Safety Report 7092259-X (Version None)
Quarter: 2010Q4

REPORT INFORMATION
  Report Type: 
  Country: None (occurrence: None)
  Receive Date: 20101109
  Receipt Date: 20101102
  Transmission Date: 20110411
  Serious: Yes (Hospitalization)
  Sender: FDA-Public Use
  Company Number: IT-ABBOTT-10P-083-0662441-00

PATIENT
  Sex: Female

DRUGS (3)
  1. VECLAM [Suspect]
     Indication: ANTIBIOTIC PROPHYLAXIS
     Route: 048
     Dates: start: 20100519, end: 20100520
  2. VECLAM [Suspect]
     Indication: HELICOBACTER INFECTION
  3. FLAGYL [Concomitant]
     Indication: ANTIBIOTIC PROPHYLAXIS
     Route: 048
     Dates: start: 20100519, end: 20100520

REACTIONS (3)
  - NAUSEA [None]
  - SYNCOPE [None]
  - VOMITING [None]
